FAERS Safety Report 8398331-6 (Version None)
Quarter: 2012Q2

REPORT INFORMATION
  Report Type: 
  Country: None (occurrence: None)
  Receive Date: 20120531
  Receipt Date: 20120521
  Transmission Date: 20120825
  Serious: Yes (Hospitalization)
  Sender: FDA-Public Use
  Company Number: DE-INCYTE CORPORATION-2012IN000595

PATIENT
  Sex: Female
  Weight: 60 kg

DRUGS (4)
  1. INC424 [Suspect]
     Dosage: UNK
     Route: 048
     Dates: start: 20120419
  2. INC424 [Suspect]
     Dosage: 10 MG, BID
     Route: 048
     Dates: start: 20120104, end: 20120314
  3. INC424 [Suspect]
     Dosage: 15 MG, BID
     Route: 048
     Dates: start: 20120315
  4. INC424 [Suspect]
     Indication: MYELOFIBROSIS
     Dosage: 20 MG, BID
     Route: 048
     Dates: start: 20111221, end: 20120103

REACTIONS (1)
  - OSTEOPOROSIS [None]
